FAERS Safety Report 8518567-0 (Version None)
Quarter: 2012Q3

REPORT INFORMATION
  Report Type: 
  Country: None (occurrence: None)
  Receive Date: 20120718
  Receipt Date: 20120523
  Transmission Date: 20120928
  Serious: No
  Sender: FDA-Public Use
  Company Number: US-BRISTOL-MYERS SQUIBB COMPANY-16619645

PATIENT
  Sex: Female

DRUGS (1)
  1. COUMADIN [Suspect]
     Dates: end: 20120201

REACTIONS (1)
  - DRUG INEFFECTIVE [None]
